FAERS Safety Report 7572327-6 (Version None)
Quarter: 2011Q2

REPORT INFORMATION
  Report Type: 
  Country: None (occurrence: None)
  Receive Date: 20110624
  Receipt Date: 20110620
  Transmission Date: 20111010
  Serious: Yes (Death)
  Sender: FDA-Public Use
  Company Number: PHHY2011CY54179

PATIENT
  Sex: Male

DRUGS (2)
  1. SUTENT [Concomitant]
     Dosage: 50 MG, UNK
     Dates: start: 20110328
  2. ZOMETA [Suspect]
     Indication: BONE DISORDER
     Dosage: 4 MG/ 5 ML, UNK
     Dates: start: 20110328

REACTIONS (1)
  - PULMONARY EMBOLISM [None]
